FAERS Safety Report 23036457 (Version 7)
Quarter: 2024Q1

REPORT INFORMATION
  Report Type: Spontaneous
  Country: CA (occurrence: CA)
  Receive Date: 20231006
  Receipt Date: 20240327
  Transmission Date: 20240409
  Serious: Yes (Other)
  Sender: FDA-Public Use
  Company Number: CA-CELLTRION INC.-2023CA019073

PATIENT

DRUGS (6)
  1. INFLECTRA [Suspect]
     Active Substance: INFLIXIMAB-DYYB
     Indication: Crohn^s disease
     Dosage: 500 MG, WEEKS 0, 2, 6 AND EVERY 8 WEEKS
     Route: 042
     Dates: start: 20221028
  2. INFLECTRA [Suspect]
     Active Substance: INFLIXIMAB-DYYB
     Dosage: 500 MG, WEEKS 0, 2, 6 AND EVERY 8 WEEKS
     Route: 042
     Dates: start: 20230608
  3. INFLECTRA [Suspect]
     Active Substance: INFLIXIMAB-DYYB
     Dosage: 500 MG, WEEKS 0, 2, 6 AND EVERY 8 WEEKS
     Route: 042
     Dates: start: 20230801
  4. INFLECTRA [Suspect]
     Active Substance: INFLIXIMAB-DYYB
     Dosage: 500 MG, WEEKS 0, 2, 6 AND EVERY 8 WEEKS
     Route: 042
     Dates: start: 20231124
  5. INFLECTRA [Suspect]
     Active Substance: INFLIXIMAB-DYYB
     Dosage: 500 MG, WEEKS 0, 2, 6 AND EVERY 8 WEEKS
     Route: 042
     Dates: start: 20240117
  6. INFLECTRA [Suspect]
     Active Substance: INFLIXIMAB-DYYB
     Dosage: 500 MG, WEEKS 0, 2, 6 AND EVERY 8 WEEKS (N/A AFTER 8 WEEKS AND 1 DAY)
     Route: 042
     Dates: start: 20240313

REACTIONS (5)
  - Haematochezia [Unknown]
  - Condition aggravated [Recovering/Resolving]
  - Drug level decreased [Unknown]
  - Mucous stools [Unknown]
  - Aphthous ulcer [Recovered/Resolved]

NARRATIVE: CASE EVENT DATE: 20230101
